FAERS Safety Report 9099716 (Version 2)
Quarter: 2013Q2

REPORT INFORMATION
  Report Type: Report from Study
  Country: US (occurrence: US)
  Receive Date: 20130214
  Receipt Date: 20130513
  Transmission Date: 20140414
  Serious: Yes (Other)
  Sender: FDA-Public Use
  Company Number: US-ABBOTT-13P-163-1044567-00

PATIENT
  Sex: Female

DRUGS (4)
  1. HUMIRA [Suspect]
     Indication: CROHN^S DISEASE
     Dates: start: 20080612, end: 20081216
  2. PHENERGAN [Concomitant]
     Indication: NAUSEA
     Dosage: USES OCCASIONALLY
  3. CORTISOL MANAGER [Concomitant]
     Indication: SUPPLEMENTATION THERAPY
     Dosage: DAILY
  4. CORTISOL MANAGER [Concomitant]
     Indication: STRESS

REACTIONS (3)
  - Ileectomy [Not Recovered/Not Resolved]
  - Gastrointestinal inflammation [Unknown]
  - Gastrointestinal stenosis [Unknown]
